FAERS Safety Report 9287913 (Version 1)
Quarter: 2013Q2

REPORT INFORMATION
  Report Type: Spontaneous
  Country: US (occurrence: CA)
  Receive Date: 20130514
  Receipt Date: 20130514
  Transmission Date: 20140414
  Serious: Yes (Life-Threatening, Hospitalization)
  Sender: FDA-Public Use
  Company Number: CA-TEVA-404714USA

PATIENT
  Sex: Female
  Weight: 54.48 kg

DRUGS (5)
  1. RATIO-ECTOSONE [Suspect]
     Route: 061
  2. BODY AND EARTH-COTTON BLOOM CREAM [Suspect]
     Route: 061
  3. GASTROGRAFIN [Concomitant]
  4. PICO-SALAX [Concomitant]
  5. READI-CAT [Concomitant]

REACTIONS (5)
  - Application site mass [Recovered/Resolved with Sequelae]
  - Rash [Recovered/Resolved with Sequelae]
  - Skin discolouration [Recovered/Resolved with Sequelae]
  - Skin exfoliation [Recovered/Resolved with Sequelae]
  - Skin maceration [Recovered/Resolved with Sequelae]
